FAERS Safety Report 24027633 (Version 2)
Quarter: 2024Q3

REPORT INFORMATION
  Report Type: Other
  Country: GB (occurrence: GB)
  Receive Date: 20240628
  Receipt Date: 20240712
  Transmission Date: 20241017
  Serious: Yes (Hospitalization, Other)
  Sender: BIOCON
  Company Number: None

PATIENT

DRUGS (5)
  1. HYRIMOZ [Suspect]
     Active Substance: ADALIMUMAB-ADAZ
     Indication: Psoriatic arthropathy
     Dosage: 80 MILLIGRAM, QWEEK, SOLUTION FOR INJECTION
     Route: 058
  2. HYRIMOZ [Suspect]
     Active Substance: ADALIMUMAB-ADAZ
     Dosage: 80 MILLIGRAM, QWEEK, SOLUTION FOR INJECTION
     Route: 058
     Dates: start: 20190510
  3. HYRIMOZ [Suspect]
     Active Substance: ADALIMUMAB-ADAZ
     Dosage: 40 MG, QOW (FORTNIGHTLY)
     Route: 058
  4. SULFASALAZINE [Suspect]
     Active Substance: SULFASALAZINE
     Indication: Product used for unknown indication
     Dosage: UNK
     Route: 065
     Dates: end: 201911
  5. LEFLUNOMIDE [Suspect]
     Active Substance: LEFLUNOMIDE
     Indication: Product used for unknown indication
     Dosage: UNK
     Route: 065

REACTIONS (17)
  - Peripheral swelling [Unknown]
  - Abscess oral [Not Recovered/Not Resolved]
  - Somnolence [Unknown]
  - Type 1 diabetes mellitus [Unknown]
  - Skin burning sensation [Unknown]
  - Sensitivity to weather change [Unknown]
  - Feeling abnormal [Unknown]
  - Crying [Unknown]
  - Hypokinesia [Unknown]
  - Psoriatic arthropathy [Recovering/Resolving]
  - Arthralgia [Unknown]
  - Pain [Recovering/Resolving]
  - Fatigue [Unknown]
  - Depressed mood [Unknown]
  - Psoriasis [Unknown]
  - Swelling [Unknown]
  - Product supply issue [Unknown]
